FAERS Safety Report 7141586-6 (Version None)
Quarter: 2010Q4

REPORT INFORMATION
  Report Type: 
  Country: None (occurrence: None)
  Receive Date: 20101119
  Receipt Date: 20100324
  Transmission Date: 20110411
  Serious: Yes (Hospitalization)
  Sender: FDA-Public Use
  Company Number: UTC-000827

PATIENT
  Age: 62 Year
  Sex: Male

DRUGS (1)
  1. TYVASO [Suspect]
     Indication: PULMONARY ARTERIAL HYPERTENSION
     Dosage: 192 MCG (48 MCG, 4 IN 1 D), INHALATION
     Route: 055
     Dates: start: 20091207

REACTIONS (2)
  - DRUG INEFFECTIVE [None]
  - PNEUMONIA [None]
